FAERS Safety Report 24616658 (Version 1)
Quarter: 2024Q4

REPORT INFORMATION
  Report Type: Spontaneous
  Country: JP (occurrence: JP)
  Receive Date: 20241114
  Receipt Date: 20241114
  Transmission Date: 20250115
  Serious: Yes (Hospitalization)
  Sender: VIIV
  Company Number: JP-ViiV Healthcare-90002

PATIENT

DRUGS (2)
  1. JULUCA [Suspect]
     Active Substance: DOLUTEGRAVIR SODIUM\RILPIVIRINE HYDROCHLORIDE
     Dosage: UNK
  2. EVOCALCET [Concomitant]
     Active Substance: EVOCALCET
     Dosage: UNK

REACTIONS (1)
  - Hospitalisation [Unknown]
